FAERS Safety Report 16729049 (Version 1)
Quarter: 2019Q3

REPORT INFORMATION
  Report Type: Spontaneous
  Country: US (occurrence: US)
  Receive Date: 20190822
  Receipt Date: 20190822
  Transmission Date: 20191005
  Serious: Yes (Other)
  Sender: FDA-Public Use
  Company Number: US-PFIZER INC-2019356348

PATIENT
  Sex: Male

DRUGS (1)
  1. PAMIDRONATE DISODIUM. [Suspect]
     Active Substance: PAMIDRONATE DISODIUM
     Indication: PLASMA CELL MYELOMA
     Dosage: UNK (TAKES PRODUCT IN A 2 HOUR IV EVERY OTHER MONTH)
     Route: 042

REACTIONS (1)
  - Rotator cuff syndrome [Unknown]
